FAERS Safety Report 9075814 (Version 1)
Quarter: 2013Q1

REPORT INFORMATION
  Report Type: Spontaneous
  Country: US (occurrence: US)
  Receive Date: 20130129
  Receipt Date: 20130129
  Transmission Date: 20140127
  Serious: No
  Sender: FDA-Public Use
  Company Number: US-ABBOTT-12P-163-0939526-00

PATIENT
  Sex: Female
  Weight: 65.83 kg

DRUGS (3)
  1. HUMIRA 40 MG/0.8 ML PEN [Suspect]
     Indication: CROHN^S DISEASE
  2. UNKNOWN MEDICATION [Concomitant]
     Indication: CROHN^S DISEASE
  3. ADDERALL [Concomitant]
     Indication: ATTENTION DEFICIT/HYPERACTIVITY DISORDER

REACTIONS (8)
  - Abnormal behaviour [Not Recovered/Not Resolved]
  - Abnormal behaviour [Not Recovered/Not Resolved]
  - Alcohol problem [Not Recovered/Not Resolved]
  - Unevaluable event [Not Recovered/Not Resolved]
  - Nasopharyngitis [Not Recovered/Not Resolved]
  - Unevaluable event [Not Recovered/Not Resolved]
  - Malaise [Not Recovered/Not Resolved]
  - Abnormal behaviour [Not Recovered/Not Resolved]
